FAERS Safety Report 11776234 (Version 13)
Quarter: 2019Q2

REPORT INFORMATION
  Report Type: Report from Study
  Country: DE (occurrence: DE)
  Receive Date: 20151125
  Receipt Date: 20190413
  Transmission Date: 20190711
  Serious: Yes (Other)
  Sender: FDA-Public Use
  Company Number: DE-ROCHE-1666736

PATIENT
  Age: 86 Year
  Sex: Female

DRUGS (15)
  1. OXYTETRACYCLINE [Concomitant]
     Active Substance: OXYTETRACYCLINE
     Dosage: EYE OINTMENT
     Route: 061
     Dates: start: 20160726, end: 2016
  2. EBRANTIL [Concomitant]
     Active Substance: URAPIDIL
     Indication: HYPERTENSION
     Route: 048
  3. RAMIPRIL. [Concomitant]
     Active Substance: RAMIPRIL
     Indication: HYPERTENSION
     Route: 048
  4. FALITHROM [Concomitant]
     Active Substance: PHENPROCOUMON
     Indication: ATRIAL FIBRILLATION
     Route: 048
  5. ALLOPURINOL. [Concomitant]
     Active Substance: ALLOPURINOL
     Indication: HYPERURICAEMIA
     Route: 048
  6. SPIRIVA [Concomitant]
     Active Substance: TIOTROPIUM BROMIDE MONOHYDRATE
     Indication: CHRONIC OBSTRUCTIVE PULMONARY DISEASE
     Dosage: 1 PUFF
     Route: 055
  7. L-THYROX [Concomitant]
     Active Substance: LEVOTHYROXINE SODIUM
     Indication: HYPOTHYROIDISM
     Route: 048
  8. VISMODEGIB. [Suspect]
     Active Substance: VISMODEGIB
     Indication: BASAL CELL CARCINOMA
     Route: 048
     Dates: start: 20140303, end: 20140519
  9. FORADIL [Concomitant]
     Active Substance: FORMOTEROL FUMARATE
     Indication: CHRONIC OBSTRUCTIVE PULMONARY DISEASE
     Dosage: 2 PUFFS
     Route: 055
  10. FUROSEMID [Concomitant]
     Active Substance: FUROSEMIDE
     Indication: HYPERTENSION
     Route: 048
  11. VISMODEGIB. [Suspect]
     Active Substance: VISMODEGIB
     Route: 048
     Dates: start: 20151005, end: 201512
  12. NEBIVOLOL. [Concomitant]
     Active Substance: NEBIVOLOL
     Indication: HYPERTENSION
     Route: 048
  13. DICLOFENAC [Concomitant]
     Active Substance: DICLOFENAC
     Indication: PAIN
     Route: 048
  14. NITRANGIN [Concomitant]
     Indication: HYPERTENSION
     Dosage: 1 PUFF
     Route: 055
  15. ZOLPIDEM [Concomitant]
     Active Substance: ZOLPIDEM\ZOLPIDEM TARTRATE
     Indication: SLEEP DISORDER
     Route: 048

REACTIONS (17)
  - Fatigue [Recovered/Resolved]
  - Alopecia [Recovered/Resolved]
  - Actinic keratosis [Unknown]
  - Rosacea [Unknown]
  - Depression [Unknown]
  - Chills [Recovered/Resolved]
  - Fall [Unknown]
  - Headache [Recovered/Resolved]
  - Decreased appetite [Recovered/Resolved]
  - Acarodermatitis [Recovered/Resolved]
  - Melaena [Recovered/Resolved]
  - Nausea [Recovered/Resolved]
  - Dizziness [Recovered/Resolved]
  - Abnormal loss of weight [Recovered/Resolved]
  - Pruritus [Unknown]
  - Epistaxis [Unknown]
  - Dizziness [Recovered/Resolved]

NARRATIVE: CASE EVENT DATE: 201404
